FAERS Safety Report 16456793 (Version 1)
Quarter: 2019Q3

REPORT INFORMATION
  Report Type: Spontaneous
  Country: US (occurrence: US)
  Receive Date: 20190619
  Receipt Date: 20190619
  Transmission Date: 20191004
  Serious: Yes (Life-Threatening, Hospitalization)
  Sender: FDA-Public Use
  Company Number: None

PATIENT
  Age: 55 Year
  Sex: Female
  Weight: 89.55 kg

DRUGS (3)
  1. SIMVASTATIN. [Concomitant]
     Active Substance: SIMVASTATIN
  2. FENOFIBRATE. [Concomitant]
     Active Substance: FENOFIBRATE
  3. MYRBETRIQ [Suspect]
     Active Substance: MIRABEGRON
     Indication: POLLAKIURIA
     Dosage: ?          QUANTITY:1 TABLET(S);?
     Route: 048
     Dates: start: 20190611, end: 20190611

REACTIONS (5)
  - Chest pain [None]
  - Dyspnoea [None]
  - Blood pressure increased [None]
  - Paraesthesia [None]
  - Fatigue [None]

NARRATIVE: CASE EVENT DATE: 20190612
